FAERS Safety Report 13823387 (Version 8)
Quarter: 2018Q4

REPORT INFORMATION
  Report Type: Spontaneous
  Country: GB (occurrence: GB)
  Receive Date: 20170802
  Receipt Date: 20181113
  Transmission Date: 20190204
  Serious: Yes (Other)
  Sender: FDA-Public Use
  Company Number: GB-CONCORDIA PHARMACEUTICALS INC.-E2B_00008285

PATIENT
  Age: 39 Year
  Sex: Female

DRUGS (19)
  1. AZATHIOPRINE. [Suspect]
     Active Substance: AZATHIOPRINE
     Indication: HYPERSENSITIVITY VASCULITIS
  2. DAPSONE. [Suspect]
     Active Substance: DAPSONE
     Indication: HYPERSENSITIVITY VASCULITIS
  3. HYDROXYCHLOROQUINE [Suspect]
     Active Substance: HYDROXYCHLOROQUINE
     Indication: URTICARIAL VASCULITIS
     Dosage: OVER 2 YEARS
     Route: 065
  4. METHOTREXATE. [Suspect]
     Active Substance: METHOTREXATE
     Indication: HYPERSENSITIVITY VASCULITIS
     Dosage: OVER 2 YEARS
     Route: 065
  5. MYCOPHENOLATE MOFETIL. [Suspect]
     Active Substance: MYCOPHENOLATE MOFETIL
     Indication: HYPERSENSITIVITY VASCULITIS
  6. RITUXIMAB. [Suspect]
     Active Substance: RITUXIMAB
     Indication: URTICARIAL VASCULITIS
     Dosage: OVER 2 YEARS
     Route: 065
  7. AZATHIOPRINE. [Suspect]
     Active Substance: AZATHIOPRINE
     Indication: URTICARIAL VASCULITIS
     Dosage: OVER 2 YEARS
     Route: 065
  8. METHOTREXATE. [Suspect]
     Active Substance: METHOTREXATE
     Indication: URTICARIAL VASCULITIS
  9. COLCHICINE. [Suspect]
     Active Substance: COLCHICINE
     Indication: HYPERSENSITIVITY VASCULITIS
  10. CICLOSPORIN [Concomitant]
     Active Substance: CYCLOSPORINE
     Indication: URTICARIAL VASCULITIS
  11. NONSTEROIDAL ANTI INFLAMMATORY DRUGS [Concomitant]
     Indication: URTICARIAL VASCULITIS
  12. HIGH DOSE GLUCOCORTICOIDS [Concomitant]
     Indication: URTICARIAL VASCULITIS
  13. PREDNISOLONE. [Suspect]
     Active Substance: PREDNISOLONE
     Indication: HYPERSENSITIVITY VASCULITIS
  14. HYDROXYCHLOROQUINE [Suspect]
     Active Substance: HYDROXYCHLOROQUINE
     Indication: HYPERSENSITIVITY VASCULITIS
  15. RITUXIMAB. [Suspect]
     Active Substance: RITUXIMAB
     Indication: HYPERSENSITIVITY VASCULITIS
  16. PREDNISOLONE. [Suspect]
     Active Substance: PREDNISOLONE
     Indication: URTICARIAL VASCULITIS
     Dosage: OVER 2 YEARS
     Route: 065
  17. DAPSONE. [Suspect]
     Active Substance: DAPSONE
     Indication: URTICARIAL VASCULITIS
     Dosage: OVER 2 YEARS
     Route: 065
  18. COLCHICINE. [Suspect]
     Active Substance: COLCHICINE
     Indication: URTICARIAL VASCULITIS
     Dosage: OVER 2 YEARS
     Route: 065
  19. MYCOPHENOLATE MOFETIL. [Suspect]
     Active Substance: MYCOPHENOLATE MOFETIL
     Indication: URTICARIAL VASCULITIS
     Dosage: OVER 2 YEARS
     Route: 065

REACTIONS (6)
  - Anaphylactic reaction [Recovered/Resolved]
  - Alopecia [Recovered/Resolved]
  - Leukopenia [Recovered/Resolved]
  - Lethargy [Recovered/Resolved]
  - Drug ineffective [Unknown]
  - Off label use [Unknown]
